FAERS Safety Report 9092914 (Version 1)
Quarter: 2013Q1

REPORT INFORMATION
  Report Type: Report from Study
  Country: CA (occurrence: CA)
  Receive Date: 20130218
  Receipt Date: 20130218
  Transmission Date: 20140127
  Serious: Yes (Disabling, Other)
  Sender: FDA-Public Use
  Company Number: CA-ABBOTT-13P-028-1050909-00

PATIENT
  Sex: Male
  Weight: 59.02 kg

DRUGS (5)
  1. KALETRA [Suspect]
     Indication: ANTIRETROVIRAL THERAPY
     Dosage: 200 MG/50 MG, 2 TAB TWICE A DAY
     Route: 048
     Dates: start: 2003
  2. SUSTIVA [Concomitant]
     Indication: HIV INFECTION
     Route: 048
  3. TRUVADA [Concomitant]
     Indication: HIV INFECTION
     Dosage: 200/300 MG
     Route: 048
  4. KIVEXA [Concomitant]
     Indication: HIV INFECTION
     Dosage: 600/300 MG
     Route: 048
  5. TYLENOL [Concomitant]
     Indication: HEADACHE
     Route: 048

REACTIONS (5)
  - Cerebrovascular accident [Recovered/Resolved]
  - Aphasia [Recovered/Resolved]
  - Hemiplegia [Recovered/Resolved]
  - Paraesthesia [Not Recovered/Not Resolved]
  - Gait disturbance [Not Recovered/Not Resolved]
